FAERS Safety Report 25698744 (Version 1)
Quarter: 2025Q3

REPORT INFORMATION
  Report Type: Spontaneous
  Country: EU (occurrence: EU)
  Receive Date: 20250819
  Receipt Date: 20250819
  Transmission Date: 20251021
  Serious: Yes (Hospitalization, Other)
  Sender: AUROBINDO
  Company Number: None

PATIENT
  Age: 81 Year
  Sex: Male
  Weight: 49 kg

DRUGS (10)
  1. IMATINIB [Suspect]
     Active Substance: IMATINIB
     Indication: Myeloproliferative neoplasm
     Dosage: 100 MILLIGRAM, UNK
     Route: 048
     Dates: start: 20180904, end: 20180928
  2. IMATINIB [Suspect]
     Active Substance: IMATINIB
     Dosage: 100 MILLIGRAM, UNK
     Route: 048
     Dates: start: 20190107, end: 20190506
  3. IMATINIB [Suspect]
     Active Substance: IMATINIB
     Route: 048
     Dates: start: 20190507, end: 202003
  4. IMATINIB [Suspect]
     Active Substance: IMATINIB
     Dosage: 100 MILLIGRAM, UNK
     Route: 048
     Dates: start: 20200820, end: 20200904
  5. IMATINIB [Suspect]
     Active Substance: IMATINIB
     Route: 048
     Dates: start: 20201204, end: 20210614
  6. IMATINIB [Suspect]
     Active Substance: IMATINIB
     Route: 048
     Dates: start: 20210615, end: 20220113
  7. IMATINIB [Suspect]
     Active Substance: IMATINIB
     Dosage: 100 MILLIGRAM, UNK
     Route: 048
     Dates: start: 20220114, end: 20220915
  8. IMATINIB [Suspect]
     Active Substance: IMATINIB
     Dosage: EN ALTERNANCE AVEC 100 MG
     Route: 048
     Dates: start: 20220916, end: 20230615
  9. IMATINIB [Suspect]
     Active Substance: IMATINIB
     Dosage: EN ALTERNANCE AVEC 50 MG
     Route: 048
     Dates: start: 20220916, end: 20230615
  10. IMATINIB [Suspect]
     Active Substance: IMATINIB
     Dosage: 100 MILLIGRAM, UNK
     Route: 048
     Dates: start: 20230616, end: 20240424

REACTIONS (2)
  - Immune thrombocytopenia [Recovered/Resolved]
  - Neutropenia [Recovered/Resolved]

NARRATIVE: CASE EVENT DATE: 20180928
